FAERS Safety Report 7907954-7 (Version None)
Quarter: 2011Q4

REPORT INFORMATION
  Report Type: 
  Country: None (occurrence: None)
  Receive Date: 20111110
  Receipt Date: 20111031
  Transmission Date: 20120403
  Serious: Yes (Hospitalization)
  Sender: FDA-Public Use
  Company Number: US-MILLENNIUM PHARMACEUTICALS, INC.-2011-05235

PATIENT
  Age: 60 Year
  Sex: Male
  Weight: 115 kg

DRUGS (18)
  1. CIPRO                              /00042702/ [Concomitant]
     Indication: PRODUCT USED FOR UNKNOWN INDICATION
     Dosage: 500 MG, BID
     Route: 048
  2. INVANZ [Concomitant]
     Indication: PRODUCT USED FOR UNKNOWN INDICATION
     Dosage: 1 G, QD
     Route: 042
  3. NAFCILLIN [Concomitant]
     Indication: INTERVERTEBRAL DISCITIS
     Dosage: 6 G, UNK
     Route: 042
  4. VELCADE [Suspect]
     Indication: MANTLE CELL LYMPHOMA
  5. LACTULOSE [Concomitant]
     Indication: PRODUCT USED FOR UNKNOWN INDICATION
     Dosage: 30 ML, PRN
     Route: 048
  6. NORVASC [Concomitant]
     Indication: PRODUCT USED FOR UNKNOWN INDICATION
     Dosage: 10 MG, QD
     Route: 048
  7. OXYCONTIN [Concomitant]
     Indication: PAIN
     Dosage: 30 MG, UNK
     Route: 048
  8. OXYCONTIN [Concomitant]
     Dosage: 20 MG, UNK
  9. NEUPOGEN [Suspect]
     Indication: MANTLE CELL LYMPHOMA
  10. ZOFRAN [Concomitant]
     Indication: NAUSEA
     Dosage: 8 MG, PRN
     Route: 048
  11. POTASSIUM CHLORIDE [Concomitant]
     Indication: PRODUCT USED FOR UNKNOWN INDICATION
     Dosage: 20 MEQ, BID
     Route: 048
  12. COMPAZINE [Concomitant]
     Indication: NAUSEA
     Dosage: 10 MG, PRN
     Route: 048
  13. OXYCONTIN [Concomitant]
     Dosage: UNK MG, PRN
     Route: 048
  14. DILAUDID [Concomitant]
     Indication: PAIN
     Dosage: UNK
     Route: 048
  15. ZOVIRAX                            /00587301/ [Concomitant]
     Indication: PRODUCT USED FOR UNKNOWN INDICATION
     Dosage: 800 MG, BID
     Route: 048
  16. FLEXERIL [Concomitant]
     Indication: PRODUCT USED FOR UNKNOWN INDICATION
     Dosage: 10 MG, PRN
     Route: 048
  17. SODIUM CHLORIDE [Concomitant]
     Indication: PRODUCT USED FOR UNKNOWN INDICATION
     Dosage: 10 ML, QD
     Route: 042
  18. SENNA                              /00142201/ [Concomitant]
     Indication: PRODUCT USED FOR UNKNOWN INDICATION
     Dosage: 17.2 MG, BID
     Route: 048

REACTIONS (2)
  - PAIN [None]
  - INTERVERTEBRAL DISCITIS [None]
